FAERS Safety Report 17624373 (Version 3)
Quarter: 2020Q3

REPORT INFORMATION
  Report Type: Spontaneous
  Country: US (occurrence: US)
  Receive Date: 20200403
  Receipt Date: 20200707
  Transmission Date: 20201102
  Serious: Yes (Other)
  Sender: FDA-Public Use
  Company Number: US-SA-2020SA079911

PATIENT

DRUGS (3)
  1. TRESIBA [Concomitant]
     Active Substance: INSULIN DEGLUDEC
  2. ADMELOG [Suspect]
     Active Substance: INSULIN LISPRO
     Dosage: 12 IU, QD
     Route: 065
  3. ADMELOG [Suspect]
     Active Substance: INSULIN LISPRO
     Indication: TYPE 1 DIABETES MELLITUS
     Dosage: 10 IU, QD
     Route: 065

REACTIONS (6)
  - Diabetic ketoacidosis [Unknown]
  - Gait disturbance [Unknown]
  - Intentional dose omission [Unknown]
  - Blood glucose increased [Unknown]
  - Eating disorder [Unknown]
  - Illness [Unknown]
